FAERS Safety Report 5537768-7 (Version None)
Quarter: 2007Q4

REPORT INFORMATION
  Report Type: 
  Country: None (occurrence: None)
  Receive Date: 20071207
  Receipt Date: 20071127
  Transmission Date: 20080405
  Serious: Yes (Other)
  Sender: FDA-Public Use
  Company Number: JP-PFIZER INC-2007100117

PATIENT
  Age: 83 Year
  Sex: Male

DRUGS (2)
  1. GABAPEN [Suspect]
     Indication: NEURALGIA
     Dosage: DAILY DOSE:200MG
     Route: 048
     Dates: start: 20071122, end: 20071124
  2. EXCEGRAN [Concomitant]
     Route: 048

REACTIONS (1)
  - CONVULSION [None]
